FAERS Safety Report 4489536-5 (Version None)
Quarter: 2004Q4

REPORT INFORMATION
  Report Type: 
  Country: None (occurrence: None)
  Receive Date: 20041026
  Receipt Date: 20041013
  Transmission Date: 20050328
  Serious: Yes (Hospitalization, Other)
  Sender: FDA-Public Use
  Company Number: WAES 0403GBR00218

PATIENT
  Age: 86 Year
  Sex: Female

DRUGS (14)
  1. COZAAR [Suspect]
     Indication: CARDIAC FAILURE
     Dosage: PO
     Route: 048
     Dates: start: 20030422, end: 20040301
  2. COZAAR [Suspect]
     Indication: CARDIAC FAILURE
     Dosage: PO
     Route: 048
     Dates: start: 20040301, end: 20040407
  3. COZAAR [Suspect]
     Indication: CARDIAC FAILURE
     Dosage: PO
     Route: 048
     Dates: start: 20040408, end: 20040517
  4. COZAAR [Suspect]
     Indication: CARDIAC FAILURE
     Dosage: PO
     Route: 048
     Dates: start: 20040518
  5. CELECOXIB [Suspect]
     Dosage: 100 MG
     Dates: end: 20040101
  6. VIOXX [Concomitant]
  7. ACETAMINOPHEN- PROPOXYPHENE HCL TAB [Concomitant]
  8. AMIODARONE [Concomitant]
  9. AMLODIPINE MALEATE [Concomitant]
  10. ASPIRIN [Concomitant]
  11. FERROUSS04 [Concomitant]
  12. FUROSEMIDE [Concomitant]
  13. NITRAZEPAM [Concomitant]
  14. SIMVASTATIN [Concomitant]

REACTIONS (16)
  - ACUTE PULMONARY OEDEMA [None]
  - ALANINE AMINOTRANSFERASE INCREASED [None]
  - ASPARTATE AMINOTRANSFERASE INCREASED [None]
  - BLOOD LACTATE DEHYDROGENASE INCREASED [None]
  - BLOOD SODIUM DECREASED [None]
  - BLOOD URIC ACID INCREASED [None]
  - FALL [None]
  - HAEMATOCRIT DECREASED [None]
  - HAEMOGLOBIN DECREASED [None]
  - HEAD INJURY [None]
  - HYPERURICAEMIA [None]
  - LYMPHOCYTE COUNT DECREASED [None]
  - OPEN WOUND [None]
  - RED BLOOD CELL COUNT DECREASED [None]
  - RENAL IMPAIRMENT [None]
  - WHITE BLOOD CELL COUNT INCREASED [None]
